FAERS Safety Report 23124678 (Version 2)
Quarter: 2023Q4

REPORT INFORMATION
  Report Type: Spontaneous
  Country: US (occurrence: US)
  Receive Date: 20231030
  Receipt Date: 20231030
  Transmission Date: 20240109
  Serious: No
  Sender: FDA-Public Use
  Company Number: US-OPELLA-2023OHG011071

PATIENT
  Sex: Female

DRUGS (1)
  1. ICY HOT WITH LIDOCAINE PAIN RELIEVING [Suspect]
     Active Substance: LIDOCAINE\MENTHOL
     Dosage: DOSAGE STRENGTH: 3.06 G; 0.765 G/76.5 G
     Route: 065

REACTIONS (2)
  - Product physical consistency issue [Unknown]
  - No adverse event [Unknown]
